FAERS Safety Report 24450791 (Version 3)
Quarter: 2024Q4

REPORT INFORMATION
  Report Type: Spontaneous
  Country: US (occurrence: US)
  Receive Date: 20241017
  Receipt Date: 20241231
  Transmission Date: 20250114
  Serious: Yes (Death, Life-Threatening, Other)
  Sender: SANOFI AVENTIS
  Company Number: US-MLMSERVICE-20241009-PI220621-00232-1

PATIENT
  Age: 53 Year
  Sex: Male

DRUGS (12)
  1. PREDNISONE [Suspect]
     Active Substance: PREDNISONE
     Indication: Renal and pancreas transplant
     Dosage: UNK
     Dates: start: 2002
  2. PREDNISONE [Suspect]
     Active Substance: PREDNISONE
     Dosage: UNK
     Dates: start: 2016, end: 2019
  3. MYCOPHENOLATE MOFETIL [Suspect]
     Active Substance: MYCOPHENOLATE MOFETIL
     Indication: Renal and pancreas transplant
     Dosage: UNK
     Dates: start: 2002
  4. MYCOPHENOLATE MOFETIL [Suspect]
     Active Substance: MYCOPHENOLATE MOFETIL
     Dosage: UNK
     Dates: start: 2016, end: 2019
  5. THYMOGLOBULIN [Suspect]
     Active Substance: LAPINE T-LYMPHOCYTE IMMUNE GLOBULIN
     Indication: Renal and pancreas transplant
     Dosage: UNK
     Dates: start: 2002, end: 2002
  6. THYMOGLOBULIN [Suspect]
     Active Substance: LAPINE T-LYMPHOCYTE IMMUNE GLOBULIN
     Dosage: UNK
     Dates: start: 2016, end: 2016
  7. METHYLPREDNISOLONE [Suspect]
     Active Substance: METHYLPREDNISOLONE
     Indication: Renal and pancreas transplant
     Dosage: UNK
     Dates: start: 2002, end: 2002
  8. METHYLPREDNISOLONE [Suspect]
     Active Substance: METHYLPREDNISOLONE
     Dosage: UNK
     Dates: start: 2016, end: 2016
  9. BASILIXIMAB [Suspect]
     Active Substance: BASILIXIMAB
     Indication: Renal and pancreas transplant
     Dosage: UNK
     Dates: start: 2002, end: 2002
  10. BASILIXIMAB [Suspect]
     Active Substance: BASILIXIMAB
     Dosage: UNK
     Dates: start: 2016, end: 2016
  11. TACROLIMUS [Suspect]
     Active Substance: TACROLIMUS
     Indication: Renal and pancreas transplant
     Dosage: UNK
     Dates: start: 2002
  12. TACROLIMUS [Suspect]
     Active Substance: TACROLIMUS
     Dosage: UNK
     Dates: start: 2016, end: 2019

REACTIONS (7)
  - Squamous cell carcinoma [Fatal]
  - Skin lesion [Fatal]
  - Neuroendocrine carcinoma of the skin [Fatal]
  - Metastatic neoplasm [Fatal]
  - Metastases to liver [Fatal]
  - Metastases to bone [Fatal]
  - Back pain [Fatal]

NARRATIVE: CASE EVENT DATE: 20160101
